FAERS Safety Report 8681016 (Version 2)
Quarter: 2012Q4

REPORT INFORMATION
  Report Type: 
  Country: US (occurrence: US)
  Receive Date: 20120724
  Receipt Date: 20120920
  Transmission Date: 20130627
  Serious: Yes (Other)
  Sender: FDA-Public Use
  Company Number: US-PFIZER INC-2012174196

PATIENT
  Age: 62 Year
  Sex: Female
  Weight: 111 kg

DRUGS (11)
  1. ZYVOX [Suspect]
     Indication: WOUND INFECTION STAPHYLOCOCCAL
     Dosage: 600 mg, 2x/day
     Route: 048
     Dates: start: 20120625, end: 20120716
  2. ASPIRIN [Concomitant]
     Dosage: 81 mg, UNK
  3. CLONIDINE [Concomitant]
     Dosage: 0.2 mg, 1x/day
  4. TAMSULOSIN [Concomitant]
     Dosage: 0.4 mg, 1x/day
  5. NIFEDIPINE [Concomitant]
     Dosage: 30 mg, 1x/day
  6. ALLOPURINOL [Concomitant]
     Dosage: 100 mg, 1x/day
  7. LEVEMIR [Concomitant]
     Dosage: UNK, 1x/day
  8. NYSTATIN [Concomitant]
     Dosage: UNK, 2x/day
     Route: 061
  9. NOVOLOG [Concomitant]
     Dosage: UNK, 4x/day
  10. COLACE [Concomitant]
     Dosage: 100 mg, 1x/day
  11. SYNTHROID [Concomitant]
     Dosage: 75 ug, 1x/day

REACTIONS (3)
  - Glossodynia [Recovering/Resolving]
  - Ageusia [Recovered/Resolved]
  - Swollen tongue [Recovered/Resolved]
